FAERS Safety Report 8079560-8 (Version None)
Quarter: 2012Q1

REPORT INFORMATION
  Report Type: 
  Country: None (occurrence: None)
  Receive Date: 20120128
  Receipt Date: 20110825
  Transmission Date: 20120608
  Serious: No
  Sender: FDA-Public Use
  Company Number: US-ABBOTT-11P-163-0850303-00

PATIENT
  Sex: Male
  Weight: 110.78 kg

DRUGS (10)
  1. AMBIEN [Concomitant]
     Indication: INSOMNIA
     Dosage: AT HOUR OF SLEEP
  2. NEXIUM [Concomitant]
     Indication: GASTROOESOPHAGEAL REFLUX DISEASE
  3. TRAMADOL HCL [Concomitant]
     Indication: PAIN
  4. LEXAPRO [Concomitant]
     Indication: STRESS
  5. NOVOLOG [Concomitant]
     Indication: TYPE 1 DIABETES MELLITUS
     Dosage: INSULIN FOR PUMP
  6. HUMIRA [Suspect]
     Indication: CROHN'S DISEASE
     Dosage: CROHN'S KIT
     Route: 058
     Dates: start: 20110818, end: 20110818
  7. TRICOR [Concomitant]
     Indication: BLOOD CHOLESTEROL INCREASED
  8. PREDNISONE TAB [Concomitant]
  9. METOPROLOL TARTRATE [Concomitant]
     Indication: HYPERTENSION
  10. PREDNISONE TAB [Concomitant]
     Indication: CROHN'S DISEASE
     Route: 048
     Dates: start: 20110701

REACTIONS (1)
  - FATIGUE [None]
